FAERS Safety Report 21469246 (Version 1)
Quarter: 2022Q4

REPORT INFORMATION
  Report Type: Other
  Country: GB (occurrence: GB)
  Receive Date: 20221018
  Receipt Date: 20221018
  Transmission Date: 20230113
  Serious: Yes (Other)
  Sender: FDA-Public Use
  Company Number: GB-MACLEODS PHARMA EU LTD-MAC2022037810

PATIENT

DRUGS (1)
  1. DONEPEZIL [Suspect]
     Active Substance: DONEPEZIL
     Indication: Dementia Alzheimer^s type
     Dosage: 5 MILLIGRAM, QD ONCE A DAY IN THE EVENING
     Route: 065
     Dates: start: 20220913, end: 20221004

REACTIONS (1)
  - Bradycardia [Not Recovered/Not Resolved]
